FAERS Safety Report 20083823 (Version 1)
Quarter: 2021Q4

REPORT INFORMATION
  Report Type: Spontaneous
  Country: US (occurrence: US)
  Receive Date: 20211118
  Receipt Date: 20211118
  Transmission Date: 20220303
  Serious: No
  Sender: FDA-Public Use
  Company Number: US-BAUSCH-BL-2021-037156

PATIENT
  Age: 62 Year
  Sex: Male

DRUGS (3)
  1. ALDARA [Suspect]
     Active Substance: IMIQUIMOD
     Indication: Product used for unknown indication
     Route: 065
  2. HUMIRA [Suspect]
     Active Substance: ADALIMUMAB
     Indication: Rheumatoid arthritis
     Dosage: CF
     Route: 058
  3. MODERNA COVID-19 VACCINE (ELASOMERAN) [Concomitant]
     Indication: COVID-19 immunisation
     Route: 030

REACTIONS (1)
  - Urticaria [Recovered/Resolved]
